FAERS Safety Report 6114710-1 (Version None)
Quarter: 2009Q1

REPORT INFORMATION
  Report Type: 
  Country: None (occurrence: None)
  Receive Date: 20090313
  Receipt Date: 20090304
  Transmission Date: 20090719
  Serious: Yes (Other)
  Sender: FDA-Public Use
  Company Number: PHHY2008JP26746

PATIENT
  Sex: Female
  Weight: 50 kg

DRUGS (4)
  1. ZOMETA [Suspect]
     Indication: BONE LESION
     Dosage: 4 MG (INTERVAL NOT PROVIDED)
     Route: 042
     Dates: start: 20080116, end: 20080806
  2. ZOMETA [Suspect]
     Indication: MULTIPLE MYELOMA
  3. LIPITOR [Concomitant]
     Indication: HYPERLIPIDAEMIA
     Dosage: 10 MG, UNK
     Route: 048
  4. AMLODIPINE [Concomitant]
     Indication: HYPERTENSION
     Dosage: 5 MG, UNK
     Route: 048

REACTIONS (2)
  - OSTEONECROSIS [None]
  - TOOTHACHE [None]
